FAERS Safety Report 6871965-3 (Version None)
Quarter: 2010Q3

REPORT INFORMATION
  Report Type: 
  Country: None (occurrence: None)
  Receive Date: 20100723
  Receipt Date: 20100719
  Transmission Date: 20110219
  Serious: Yes (Hospitalization, Other)
  Sender: FDA-Public Use
  Company Number: DE-JNJFOC-20100701594

PATIENT
  Age: 45 Year
  Sex: Male

DRUGS (2)
  1. CONCERTA [Suspect]
     Indication: ATTENTION DEFICIT/HYPERACTIVITY DISORDER
     Route: 048
  2. RITALIN [Suspect]
     Indication: ATTENTION DEFICIT/HYPERACTIVITY DISORDER
     Dosage: 10 OR 20 MG/D
     Route: 048

REACTIONS (8)
  - ANXIETY [None]
  - HYPERACUSIS [None]
  - ILLUSION [None]
  - OFF LABEL USE [None]
  - PARANOIA [None]
  - PSYCHOTIC DISORDER [None]
  - SENSORY DISTURBANCE [None]
  - SLEEP DISORDER [None]
